FAERS Safety Report 18740185 (Version 1)
Quarter: 2021Q1

REPORT INFORMATION
  Report Type: Report from Study
  Country: CA (occurrence: CA)
  Receive Date: 20210114
  Receipt Date: 20210114
  Transmission Date: 20210419
  Serious: Yes (Other)
  Sender: FDA-Public Use
  Company Number: CA-ASTRAZENECA-2021A002480

PATIENT
  Sex: Male

DRUGS (10)
  1. IMBRUVICA [Concomitant]
     Active Substance: IBRUTINIB
  2. METOPROLOL. [Concomitant]
     Active Substance: METOPROLOL
  3. PREDNISONE. [Concomitant]
     Active Substance: PREDNISONE
  4. CALQUENCE [Suspect]
     Active Substance: ACALABRUTINIB
     Indication: CHRONIC LYMPHOCYTIC LEUKAEMIA
     Route: 048
     Dates: start: 20201211
  5. FOLIC ACID. [Concomitant]
     Active Substance: FOLIC ACID
  6. OXYCODONE [Concomitant]
     Active Substance: OXYCODONE
  7. OXYMETHOLONE [Concomitant]
     Active Substance: OXYMETHOLONE
  8. PREGABALIN. [Concomitant]
     Active Substance: PREGABALIN
  9. MULTIVITAMINS [Concomitant]
     Active Substance: VITAMINS
  10. VANCOMYCIN [Concomitant]
     Active Substance: VANCOMYCIN

REACTIONS (2)
  - Pain [Unknown]
  - Gait inability [Unknown]
